FAERS Safety Report 5612843-7 (Version None)
Quarter: 2008Q1

REPORT INFORMATION
  Report Type: 
  Country: None (occurrence: None)
  Receive Date: 20080204
  Receipt Date: 20080125
  Transmission Date: 20080703
  Serious: Yes (Other)
  Sender: FDA-Public Use
  Company Number: US-ABBOTT-08P-163-0435235-00

PATIENT
  Sex: Female
  Weight: 17.252 kg

DRUGS (1)
  1. OMNICEF [Suspect]
     Indication: PHARYNGITIS
     Route: 048
     Dates: start: 20080124, end: 20080124

REACTIONS (5)
  - CONVULSION [None]
  - CYANOSIS [None]
  - PALLOR [None]
  - TREMOR [None]
  - VOMITING [None]
